FAERS Safety Report 7464797-9 (Version None)
Quarter: 2011Q2

REPORT INFORMATION
  Report Type: 
  Country: None (occurrence: None)
  Receive Date: 20110503
  Receipt Date: 20110503
  Transmission Date: 20111010
  Serious: No
  Sender: FDA-Public Use
  Company Number: None

PATIENT
  Age: 59 Year
  Sex: Female
  Weight: 86.1834 kg

DRUGS (1)
  1. TRIAD ALCOHOL PREP PADS [Suspect]

REACTIONS (5)
  - TRANSMISSION OF AN INFECTIOUS AGENT VIA A MEDICINAL PRODUCT [None]
  - APPLICATION SITE INFECTION [None]
  - SUBCUTANEOUS ABSCESS [None]
  - SCAR [None]
  - PRODUCT CONTAMINATION MICROBIAL [None]
